FAERS Safety Report 9870839 (Version 1)
Quarter: 2014Q1

REPORT INFORMATION
  Report Type: Spontaneous
  Country: FR (occurrence: FR)
  Receive Date: 20140205
  Receipt Date: 20140205
  Transmission Date: 20141002
  Serious: Yes (Life-Threatening, Hospitalization)
  Sender: FDA-Public Use
  Company Number: FR-BRISTOL-MYERS SQUIBB COMPANY-20104196

PATIENT
  Age: 50 Year
  Sex: Male

DRUGS (6)
  1. REYATAZ [Suspect]
     Dates: start: 20130829
  2. IBUPROFEN [Suspect]
     Dates: start: 20130829
  3. TRUVADA [Suspect]
     Dates: start: 20130829
  4. NORVIR [Suspect]
     Dates: start: 20130829
  5. COLCHICINE [Suspect]
     Dates: start: 20130829
  6. SEROPLEX [Concomitant]
     Indication: ANXIETY

REACTIONS (9)
  - Renal failure acute [Unknown]
  - Mouth ulceration [Recovered/Resolved]
  - Agranulocytosis [Recovered/Resolved]
  - Thrombocytopenia [Recovered/Resolved]
  - Rhabdomyolysis [Recovered/Resolved]
  - Intentional overdose [Unknown]
  - Aspartate aminotransferase increased [Unknown]
  - Oesophageal ulcer [Unknown]
  - Diarrhoea [Unknown]
